FAERS Safety Report 6523145-9 (Version None)
Quarter: 2009Q4

REPORT INFORMATION
  Report Type: 
  Country: None (occurrence: None)
  Receive Date: 20091222
  Receipt Date: 20091215
  Transmission Date: 20100525
  Serious: Yes (Hospitalization)
  Sender: FDA-Public Use
  Company Number: 2009AL007799

PATIENT
  Age: 58 Year
  Sex: Male

DRUGS (4)
  1. CARBAMAZEPINE [Suspect]
     Indication: PAIN
     Dosage: 200 MG; QD
  2. ETODOLAC [Suspect]
     Indication: PAIN
     Dosage: 400 MG; QD
  3. AMITRIPTYLINE [Concomitant]
  4. KAMPO [Concomitant]

REACTIONS (7)
  - ACUTE INTERSTITIAL PNEUMONITIS [None]
  - ACUTE RESPIRATORY DISTRESS SYNDROME [None]
  - DRUG HYPERSENSITIVITY [None]
  - HAEMODIALYSIS [None]
  - HYPOXIA [None]
  - NEUTROPHILIA [None]
  - PLEURAL EFFUSION [None]
